FAERS Safety Report 7364765-1 (Version None)
Quarter: 2011Q1

REPORT INFORMATION
  Report Type: 
  Country: None (occurrence: None)
  Receive Date: 20110321
  Receipt Date: 20110310
  Transmission Date: 20110831
  Serious: Yes (Death)
  Sender: FDA-Public Use
  Company Number: AU-BAXTER-2011BH006470

PATIENT
  Age: 83 Year
  Sex: Male

DRUGS (2)
  1. DIANEAL [Suspect]
     Indication: PERITONEAL DIALYSIS
     Route: 033
     Dates: end: 20110310
  2. DIANEAL [Suspect]
     Indication: PERITONEAL DIALYSIS
     Route: 034
     Dates: end: 20110310

REACTIONS (1)
  - DEATH [None]
